FAERS Safety Report 7295962-1 (Version None)
Quarter: 2011Q1

REPORT INFORMATION
  Report Type: 
  Country: None (occurrence: None)
  Receive Date: 20110216
  Receipt Date: 20110112
  Transmission Date: 20110831
  Serious: No
  Sender: FDA-Public Use
  Company Number: US-ABBOTT-11P-163-0696810-00

PATIENT
  Sex: Female
  Weight: 71.732 kg

DRUGS (1)
  1. SIMCOR [Suspect]
     Indication: LOW DENSITY LIPOPROTEIN INCREASED
     Dates: start: 20101215

REACTIONS (4)
  - PARAESTHESIA [None]
  - HEART RATE INCREASED [None]
  - SKIN BURNING SENSATION [None]
  - FLUSHING [None]
